FAERS Safety Report 10017902 (Version 1)
Quarter: 2014Q1

REPORT INFORMATION
  Report Type: Spontaneous
  Country: US (occurrence: US)
  Receive Date: 20140318
  Receipt Date: 20140318
  Transmission Date: 20141002
  Serious: No
  Sender: FDA-Public Use
  Company Number: US-BRISTOL-MYERS SQUIBB COMPANY-18862920

PATIENT
  Sex: Male

DRUGS (2)
  1. ERBITUX [Suspect]
     Dosage: 3 OF 6 TREATMENTS, AND RECEIVES TREATMENTS EVERY OTHER WEEK
  2. OXALIPLATIN [Suspect]
     Route: 042

REACTIONS (3)
  - Rash [Recovered/Resolved]
  - Pruritus [Unknown]
  - Urticaria [Unknown]
